FAERS Safety Report 9547534 (Version 1)
Quarter: 2013Q2

REPORT INFORMATION
  Report Type: Spontaneous
  Country: US (occurrence: None)
  Receive Date: 20130524
  Receipt Date: 20130524
  Transmission Date: 20140414
  Serious: No
  Sender: FDA-Public Use
  Company Number: PHEH2013US004331

PATIENT
  Age: 18 Year
  Sex: Female

DRUGS (1)
  1. GILENYA (FINGOLIMOD) CAPSULE, 0.5MG [Suspect]
     Indication: MULTIPLE SCLEROSIS
     Route: 048
     Dates: start: 201112

REACTIONS (7)
  - Chest discomfort [None]
  - Chest pain [None]
  - Fall [None]
  - Limb discomfort [None]
  - Tremor [None]
  - Blood pressure increased [None]
  - Paraesthesia [None]
